FAERS Safety Report 5142052-X (Version None)
Quarter: 2006Q4

REPORT INFORMATION
  Report Type: 
  Country: None (occurrence: None)
  Receive Date: 20061102
  Receipt Date: 20061026
  Transmission Date: 20070319
  Serious: Yes (Other)
  Sender: FDA-Public Use
  Company Number: PL-BAYER-200615056GDS

PATIENT
  Age: 25 Year
  Sex: Male

DRUGS (10)
  1. DACARBAZINE [Suspect]
     Indication: HODGKIN'S DISEASE
     Route: 065
  2. DACARBAZINE [Suspect]
     Route: 065
  3. CORTICOSTEROID [Concomitant]
     Indication: HODGKIN'S DISEASE
     Route: 065
     Dates: start: 20010801
  4. CORTICOSTEROID [Concomitant]
     Route: 065
     Dates: start: 20030601
  5. DOXORUBICIN HCL [Concomitant]
     Indication: HODGKIN'S DISEASE
     Route: 065
     Dates: start: 20010801
  6. DOXORUBICIN HCL [Concomitant]
     Route: 065
     Dates: start: 20030601
  7. BLEOMYCIN [Concomitant]
     Indication: HODGKIN'S DISEASE
     Route: 065
     Dates: start: 20030601
  8. BLEOMYCIN [Concomitant]
     Route: 065
     Dates: start: 20010801
  9. VINBLASTINE SULFATE [Concomitant]
     Indication: HODGKIN'S DISEASE
     Route: 065
     Dates: start: 20030601
  10. VINBLASTINE SULFATE [Concomitant]
     Route: 065
     Dates: start: 20010801

REACTIONS (5)
  - GRANULOMA [None]
  - LUNG NEOPLASM [None]
  - LYMPHADENOPATHY [None]
  - MALIGNANT NEOPLASM PROGRESSION [None]
  - PULMONARY SARCOIDOSIS [None]
